FAERS Safety Report 8924762 (Version 2)
Quarter: 2013Q1

REPORT INFORMATION
  Report Type: Spontaneous
  Country: US (occurrence: US)
  Receive Date: 20121126
  Receipt Date: 20130222
  Transmission Date: 20140127
  Serious: Yes (Death)
  Sender: FDA-Public Use
  Company Number: US-CELGENEUS-163-21880-12112621

PATIENT
  Age: 71 Year
  Sex: Female

DRUGS (5)
  1. REVLIMID [Suspect]
     Indication: MANTLE CELL LYMPHOMA
     Dosage: 10 MILLIGRAM
     Route: 048
     Dates: start: 20121023
  2. VASOTEC [Concomitant]
     Indication: HYPERTENSION
     Dosage: 10 MILLIGRAM
     Route: 065
  3. ACYCLOVIR [Concomitant]
     Indication: LYMPHOMA
     Dosage: 800 MILLIGRAM
     Route: 065
  4. ALLOPURINOL [Concomitant]
     Indication: LYMPHOMA
     Dosage: 300 MILLIGRAM
     Route: 065
  5. BACTRIM [Concomitant]
     Indication: LYMPHOMA
     Route: 065

REACTIONS (2)
  - Cerebral haemorrhage [Fatal]
  - Mantle cell lymphoma [Fatal]
